FAERS Safety Report 13963857 (Version 1)
Quarter: 2017Q3

REPORT INFORMATION
  Report Type: Spontaneous
  Country: ES (occurrence: ES)
  Receive Date: 20170913
  Receipt Date: 20170913
  Transmission Date: 20171128
  Serious: Yes (Death, Hospitalization)
  Sender: FDA-Public Use
  Company Number: ES-SCIEGEN PHARMACEUTICALS INC-2017SCILIT00569

PATIENT
  Age: 11 Year
  Sex: Female

DRUGS (2)
  1. IBUPROFEN. [Concomitant]
     Active Substance: IBUPROFEN
     Indication: JOINT INJURY
     Dosage: 600 MG, EVERY EIGHT HOUR
     Route: 065
  2. LAMOTRIGINE TABLETS [Suspect]
     Active Substance: LAMOTRIGINE
     Indication: SEIZURE
     Dosage: 25 MG IN THE MORINING AND 50 MG AT NIGHT TO PROGRESSIVE DOSE (SIC)
     Route: 065

REACTIONS (3)
  - Cardio-respiratory arrest [Fatal]
  - Septic shock [Unknown]
  - Toxic epidermal necrolysis [Unknown]
